FAERS Safety Report 9997935 (Version 1)
Quarter: 2014Q1

REPORT INFORMATION
  Report Type: Spontaneous
  Country: TR (occurrence: TR)
  Receive Date: 20140311
  Receipt Date: 20140311
  Transmission Date: 20141002
  Serious: Yes (Other)
  Sender: FDA-Public Use
  Company Number: PHHY2014TR029173

PATIENT
  Age: 71 Year
  Sex: Male

DRUGS (4)
  1. ZOMETA [Suspect]
     Indication: PROSTATE CANCER METASTATIC
     Dosage: 4 MG, ONCE EVERY 4 WEEKS
     Route: 042
  2. ZOLADEX [Concomitant]
     Indication: PROSTATE CANCER METASTATIC
     Dosage: 10.8 MG, UNK
  3. CASODEX [Concomitant]
     Indication: PROSTATE CANCER METASTATIC
     Dosage: 50 MG, UNK
  4. SALINE [Concomitant]
     Dosage: 100 ML, UNK

REACTIONS (4)
  - Osteonecrosis of jaw [Recovered/Resolved]
  - Pain in jaw [Recovered/Resolved]
  - Mastication disorder [Recovered/Resolved]
  - Prostatic specific antigen increased [Recovered/Resolved]
